FAERS Safety Report 6029351-4 (Version None)
Quarter: 2009Q1

REPORT INFORMATION
  Report Type: 
  Country: None (occurrence: None)
  Receive Date: 20090105
  Receipt Date: 20081226
  Transmission Date: 20090719
  Serious: Yes (Death, Other)
  Sender: FDA-Public Use
  Company Number: 2007US001666

PATIENT
  Age: 57 Year
  Sex: Male
  Weight: 58.5 kg

DRUGS (20)
  1. AMBISOME [Suspect]
     Indication: MENINGITIS CRYPTOCOCCAL
     Dosage: 350 MG,  IV DRIP
     Route: 041
     Dates: start: 20070605, end: 20071005
  2. ANCOTIL(FLUCYTOSINE) [Suspect]
     Indication: MENINGITIS CRYPTOCOCCAL
     Dosage: 1500 MG, UID/QD, ORAL
     Route: 048
     Dates: start: 20070605, end: 20070731
  3. ANCOTIL(FLUCYTOSINE) [Suspect]
     Indication: MENINGITIS CRYPTOCOCCAL
     Dosage: 1500 MG, UID/QD, ORAL
     Route: 048
     Dates: start: 20070905, end: 20070926
  4. NOVOLIN R [Concomitant]
  5. INDERAL [Concomitant]
  6. LASIX [Concomitant]
  7. DIOVAN [Concomitant]
  8. NORVASC [Concomitant]
  9. GASTER D [Concomitant]
  10. PRODIF (FOSFLUCONAZOLE) [Concomitant]
  11. HUMULIN R [Concomitant]
  12. MEROPENEM (MEROPENEM TRIHYDRATE) [Concomitant]
  13. GLYCEROL 2.6% [Concomitant]
  14. DOPAMINE HYDROCHLORIDE [Concomitant]
  15. CEFAMEZIN ALPHA (CEFAZOLIN SODIUM) [Concomitant]
  16. URSO 250 [Concomitant]
  17. CEFOTIAM HYDROCHLORIDE [Concomitant]
  18. DALACIN ST [Concomitant]
  19. VFEND [Concomitant]
  20. NEOPHAGEN-1 (AMINOACETIC ACID, DL-METHIONINE, GLYCYRRHIZIC ACID) [Concomitant]

REACTIONS (10)
  - ARRHYTHMIA [None]
  - CHOLELITHIASIS [None]
  - CONDITION AGGRAVATED [None]
  - DIARRHOEA [None]
  - HYPOKALAEMIA [None]
  - INFECTION [None]
  - MENINGITIS CRYPTOCOCCAL [None]
  - PANCYTOPENIA [None]
  - RENAL IMPAIRMENT [None]
  - STAPHYLOCOCCAL SEPSIS [None]
